FAERS Safety Report 9290346 (Version 3)
Quarter: 2013Q3

REPORT INFORMATION
  Report Type: Spontaneous
  Country: US (occurrence: US)
  Receive Date: 20130515
  Receipt Date: 20130711
  Transmission Date: 20140515
  Serious: Yes (Other)
  Sender: FDA-Public Use
  Company Number: US-PFIZER INC-2013149308

PATIENT
  Age: 60 Year
  Sex: Male
  Weight: 71.6 kg

DRUGS (6)
  1. NORVASC [Suspect]
     Indication: HYPERTENSION
     Dosage: UNK
     Dates: start: 1993
  2. BENICAR [Suspect]
     Indication: HYPERTENSION
     Dosage: 10 MG (HALF OF 20 MG TABLET), 1X/DAY
     Dates: start: 2003
  3. COZAAR [Suspect]
     Indication: HYPERTENSION
     Dosage: UNK
  4. MICARDIS [Suspect]
     Indication: HYPERTENSION
     Dosage: UNK
  5. FUROSEMIDE [Concomitant]
     Indication: HYPERTENSION
     Dosage: 10 MG (HALF OF 20 MG TABLET), 1X/DAY
     Dates: start: 2012
  6. ZOCOR [Concomitant]
     Indication: BLOOD CHOLESTEROL INCREASED
     Dosage: 10 MG, 1X/DAY

REACTIONS (3)
  - Cardiac disorder [Unknown]
  - Respiratory disorder [Unknown]
  - Drug administration error [Unknown]
